FAERS Safety Report 9145712 (Version 4)
Quarter: 2013Q3

REPORT INFORMATION
  Report Type: Report from Study
  Country: FR (occurrence: FR)
  Receive Date: 20130307
  Receipt Date: 20130827
  Transmission Date: 20140515
  Serious: Yes (Hospitalization, Other)
  Sender: FDA-Public Use
  Company Number: FR-MPIJNJ-2013-01167

PATIENT
  Age: 80 Year
  Sex: Male

DRUGS (15)
  1. VELCADE [Suspect]
     Indication: MANTLE CELL LYMPHOMA
     Dosage: 2.5 MG, CYCLIC
     Route: 042
     Dates: start: 20121005, end: 20130110
  2. MABTHERA [Suspect]
     Indication: MANTLE CELL LYMPHOMA
     Dosage: 750 MG, UNK
     Route: 042
     Dates: start: 20121005, end: 20130131
  3. LEVACT [Suspect]
     Indication: MANTLE CELL LYMPHOMA
     Dosage: 180 MG, UNK
     Route: 042
     Dates: start: 20121005, end: 20130131
  4. METHYLPREDNISOLONE [Suspect]
     Indication: MANTLE CELL LYMPHOMA
     Dosage: UNK
     Route: 065
     Dates: start: 20121005, end: 20121231
  5. DIFFU K [Concomitant]
     Dosage: UNK
  6. LASILIX                            /00032601/ [Concomitant]
     Dosage: UNK
  7. ZELITREX                           /01269701/ [Concomitant]
     Dosage: UNK
  8. CLAMOXYL (AMOXICILLIN) [Concomitant]
  9. ATARAX                             /00058401/ [Concomitant]
  10. ROCEPHINE                          /00672201/ [Concomitant]
  11. ACETYLCYSTEINE [Concomitant]
  12. CONTRAMAL [Concomitant]
  13. IMOVANE [Concomitant]
  14. LOVENOX [Concomitant]
  15. SODIUM CHLORIDE [Concomitant]

REACTIONS (2)
  - Pleural effusion [Recovering/Resolving]
  - Pulmonary embolism [Recovering/Resolving]
